FAERS Safety Report 10246062 (Version 3)
Quarter: 2014Q3

REPORT INFORMATION
  Report Type: Spontaneous
  Country: IE (occurrence: IE)
  Receive Date: 20140619
  Receipt Date: 20140825
  Transmission Date: 20150326
  Serious: Yes (Death, Hospitalization)
  Sender: FDA-Public Use
  Company Number: IE-AMGEN-IRLSP2014045158

PATIENT
  Age: 65 Year
  Sex: Male

DRUGS (1)
  1. NEUPOGEN [Suspect]
     Active Substance: FILGRASTIM
     Indication: NEUTROPENIA
     Dosage: 30 MU, FOR 2 WEEKS DAILY
     Route: 058
     Dates: start: 201001

REACTIONS (3)
  - Neutropenic sepsis [Unknown]
  - Enterobacter infection [Unknown]
  - Death [Fatal]

NARRATIVE: CASE EVENT DATE: 20110822
